FAERS Safety Report 8219538-4 (Version None)
Quarter: 2012Q1

REPORT INFORMATION
  Report Type: 
  Country: None (occurrence: None)
  Receive Date: 20120319
  Receipt Date: 20120308
  Transmission Date: 20120608
  Serious: Yes (Hospitalization)
  Sender: FDA-Public Use
  Company Number: GB-JNJFOC-20110709940

PATIENT
  Sex: Female

DRUGS (11)
  1. INFLIXIMAB, RECOMBINANT [Suspect]
     Indication: RHEUMATOID ARTHRITIS
     Route: 042
     Dates: start: 20040615
  2. LANSOPRAZOLE [Concomitant]
  3. METHOTREXATE [Concomitant]
  4. DIDRONEL PMO [Concomitant]
  5. METHOTREXATE [Concomitant]
     Dates: start: 20040615
  6. BENDROFLUAZIDE [Concomitant]
  7. FOLIC ACID [Concomitant]
  8. SIMVASTATIN [Concomitant]
  9. ASPIRIN [Concomitant]
  10. TRAMADOL HCL [Concomitant]
  11. SPIRONOLACTONE [Concomitant]

REACTIONS (3)
  - PANCREATITIS [None]
  - VOMITING [None]
  - ABDOMINAL PAIN [None]
